FAERS Safety Report 6772274-3 (Version None)
Quarter: 2010Q2

REPORT INFORMATION
  Report Type: 
  Country: None (occurrence: None)
  Receive Date: 20100616
  Receipt Date: 20100315
  Transmission Date: 20101027
  Serious: No
  Sender: FDA-Public Use
  Company Number: US-ASTRAZENECA-2010SE11062

PATIENT
  Age: 57 Month
  Sex: Female
  Weight: 50 kg

DRUGS (4)
  1. PULMICORT RESPULES [Suspect]
     Indication: ASTHMA
     Dosage: 0.5 MG/ 2ML ONCE A DAY
     Route: 055
     Dates: start: 20090901, end: 20091201
  2. PULMICORT RESPULES [Suspect]
     Dosage: 0.5 MG/ 2 ML TWICE A DAY
     Route: 055
     Dates: start: 20091201
  3. ZYRTEC [Concomitant]
  4. ALBUTEROL [Concomitant]

REACTIONS (2)
  - ASTHMA [None]
  - DRUG INEFFECTIVE [None]
